FAERS Safety Report 18246037 (Version 1)
Quarter: 2020Q3

REPORT INFORMATION
  Report Type: Report from Study
  Country: US (occurrence: US)
  Receive Date: 20200909
  Receipt Date: 20200909
  Transmission Date: 20201103
  Serious: Yes (Other)
  Sender: FDA-Public Use
  Company Number: US-ASTRAZENECA-2020SF13118

PATIENT
  Age: 63 Year
  Sex: Female

DRUGS (25)
  1. MAGNESIUM CARBONATE [Concomitant]
     Active Substance: MAGNESIUM CARBONATE
  2. POTASSIUM [Concomitant]
     Active Substance: POTASSIUM
  3. VITAMIN C [Concomitant]
     Active Substance: ASCORBIC ACID
  4. HYDROCHLOROTHIAZIDE. [Concomitant]
     Active Substance: HYDROCHLOROTHIAZIDE
  5. VITAMIN D [Concomitant]
     Active Substance: VITAMIN D NOS
  6. FOSAMAX [Concomitant]
     Active Substance: ALENDRONATE SODIUM
  7. OMEGA 3 [Concomitant]
     Active Substance: OMEGA-3 FATTY ACIDS
  8. PROVENTIL [Concomitant]
     Active Substance: ALBUTEROL
  9. VALTREX [Concomitant]
     Active Substance: VALACYCLOVIR HYDROCHLORIDE
  10. ALDACTONE [Concomitant]
     Active Substance: SPIRONOLACTONE
  11. COLACE [Concomitant]
     Active Substance: DOCUSATE SODIUM
  12. MYLANTA [Concomitant]
     Active Substance: ALUMINUM HYDROXIDE\DIMETHICONE\MAGNESIUM HYDROXIDE
  13. PLAQUENIL [Concomitant]
     Active Substance: HYDROXYCHLOROQUINE SULFATE
  14. SPIRIVA [Concomitant]
     Active Substance: TIOTROPIUM BROMIDE MONOHYDRATE
  15. XOLAIR [Concomitant]
     Active Substance: OMALIZUMAB
  16. ASPIRIN 81 [Concomitant]
     Active Substance: ASPIRIN
  17. FUROSEMIDE. [Concomitant]
     Active Substance: FUROSEMIDE
  18. MIRALAX [Concomitant]
     Active Substance: POLYETHYLENE GLYCOL 3350
  19. PREDNISONE. [Concomitant]
     Active Substance: PREDNISONE
  20. FASENRA [Suspect]
     Active Substance: BENRALIZUMAB
     Indication: ASTHMA
     Route: 058
  21. ALBUTEROL. [Concomitant]
     Active Substance: ALBUTEROL
  22. CLARITIN [Concomitant]
     Active Substance: LORATADINE
  23. COLCHICINE. [Concomitant]
     Active Substance: COLCHICINE
  24. VITAMIN B COMPLEX [Concomitant]
     Active Substance: CYANOCOBALAMIN\DEXPANTHENOL\NIACINAMIDE\PYRIDOXINE HYDROCHLORIDE\RIBOFLAVIN 5^-PHOSPHATE SODIUM\THIAMINE HYDROCHLORIDE\VITAMIN B COMPLEX
  25. SINGULAIR [Concomitant]
     Active Substance: MONTELUKAST SODIUM

REACTIONS (5)
  - Seizure [Unknown]
  - Asthenia [Unknown]
  - Somnolence [Unknown]
  - Arthralgia [Unknown]
  - Cough [Unknown]
